FAERS Safety Report 21957365 (Version 2)
Quarter: 2023Q1

REPORT INFORMATION
  Report Type: Report from Study
  Country: US (occurrence: US)
  Receive Date: 20230206
  Receipt Date: 20230208
  Transmission Date: 20230418
  Serious: Yes (Other)
  Sender: FDA-Public Use
  Company Number: US-ABBVIE-4295545

PATIENT
  Age: 64 Year
  Sex: Male
  Weight: 74 kg

DRUGS (4)
  1. VENCLEXTA [Suspect]
     Active Substance: VENETOCLAX
     Indication: Chronic lymphocytic leukaemia
     Route: 048
     Dates: start: 20211222
  2. FINASTERIDE [Concomitant]
     Active Substance: FINASTERIDE
     Indication: Product used for unknown indication
  3. PSYLLIUM [Concomitant]
     Active Substance: PLANTAGO SEED
     Indication: Product used for unknown indication
  4. CALCIUM [Concomitant]
     Active Substance: CALCIUM
     Indication: Product used for unknown indication

REACTIONS (7)
  - Blindness unilateral [Recovered/Resolved]
  - Abdominal pain upper [Recovered/Resolved]
  - Abnormal sensation in eye [Recovered/Resolved]
  - Vision blurred [Recovered/Resolved]
  - Ophthalmic migraine [Recovered/Resolved]
  - Gastric disorder [Unknown]
  - Metamorphopsia [Unknown]

NARRATIVE: CASE EVENT DATE: 20220901
